FAERS Safety Report 15464267 (Version 1)
Quarter: 2018Q4

REPORT INFORMATION
  Report Type: Spontaneous
  Country: CZ (occurrence: CZ)
  Receive Date: 20181004
  Receipt Date: 20181004
  Transmission Date: 20190204
  Serious: Yes (Death, Life-Threatening, Hospitalization, Other)
  Sender: FDA-Public Use
  Company Number: CZ-MACLEODS PHARMACEUTICALS US LTD-MAC2018017069

PATIENT

DRUGS (2)
  1. ESCITALOPRAM OXALATE. [Suspect]
     Active Substance: ESCITALOPRAM OXALATE
     Indication: SUICIDE ATTEMPT
     Dosage: UNK
     Route: 048
  2. YEW [Suspect]
     Active Substance: HERBALS\HOMEOPATHICS\TAXUS BACCATA FRUIT
     Indication: SUICIDE ATTEMPT
     Dosage: UNK
     Route: 065

REACTIONS (4)
  - Cardiac fibrillation [Recovered/Resolved]
  - Toxicity to various agents [Unknown]
  - Ventricular fibrillation [Recovered/Resolved]
  - Brain death [Fatal]
